FAERS Safety Report 14444595 (Version 2)
Quarter: 2018Q4

REPORT INFORMATION
  Report Type: Spontaneous
  Country: JP (occurrence: JP)
  Receive Date: 20180126
  Receipt Date: 20181119
  Transmission Date: 20190204
  Serious: Yes (Other)
  Sender: FDA-Public Use
  Company Number: JP-ASTELLAS-2018JP001222

PATIENT
  Age: 48 Year
  Sex: Female

DRUGS (10)
  1. TACROLIMUS. [Suspect]
     Active Substance: TACROLIMUS
     Indication: IMMUNOSUPPRESSANT DRUG THERAPY
     Dosage: UNK UNK, UNKNOWN FREQ.
     Route: 065
  2. MILRINONE [Suspect]
     Active Substance: MILRINONE
     Indication: REVERSIBLE CEREBRAL VASOCONSTRICTION SYNDROME
     Dosage: UNK UNK, UNKNOWN FREQ.
     Route: 041
  3. NICARDIPINE [Suspect]
     Active Substance: NICARDIPINE
     Indication: REVERSIBLE CEREBRAL VASOCONSTRICTION SYNDROME
     Dosage: UNK UNK, UNKNOWN FREQ.
     Route: 042
  4. MICOFENOLATO MOFETIL [Suspect]
     Active Substance: MYCOPHENOLATE MOFETIL
     Indication: IMMUNOSUPPRESSANT DRUG THERAPY
     Dosage: UNK UNK, UNKNOWN FREQ.
     Route: 065
  5. MAGNESIUM SULPHATE                 /07507001/ [Concomitant]
     Active Substance: MAGNESIUM SULFATE
     Indication: REVERSIBLE CEREBRAL VASOCONSTRICTION SYNDROME
     Dosage: UNK UNK, UNKNOWN FREQ.
     Route: 065
  6. VERAPAMIL [Concomitant]
     Active Substance: VERAPAMIL HYDROCHLORIDE
     Indication: REVERSIBLE CEREBRAL VASOCONSTRICTION SYNDROME
     Dosage: UNK UNK, UNKNOWN FREQ.
     Route: 065
  7. CICLOSPORIN [Concomitant]
     Active Substance: CYCLOSPORINE
     Indication: PRODUCT USED FOR UNKNOWN INDICATION
     Dosage: UNK UNK, UNKNOWN FREQ.
     Route: 065
  8. ARGATROBAN. [Concomitant]
     Active Substance: ARGATROBAN
     Indication: REVERSIBLE CEREBRAL VASOCONSTRICTION SYNDROME
     Dosage: UNK UNK, UNKNOWN FREQ.
     Route: 042
  9. BASILIXIMAB [Concomitant]
     Active Substance: BASILIXIMAB
     Indication: PRODUCT USED FOR UNKNOWN INDICATION
     Dosage: UNK UNK, UNKNOWN FREQ.
     Route: 065
  10. DEXTRAN [Concomitant]
     Active Substance: DEXTRAN
     Indication: REVERSIBLE CEREBRAL VASOCONSTRICTION SYNDROME
     Dosage: UNK UNK, UNKNOWN FREQ.
     Route: 065

REACTIONS (2)
  - Reversible cerebral vasoconstriction syndrome [Recovering/Resolving]
  - Off label use [Unknown]
